FAERS Safety Report 12367554 (Version 1)
Quarter: 2016Q2

REPORT INFORMATION
  Report Type: Spontaneous
  Country: US (occurrence: US)
  Receive Date: 20160513
  Receipt Date: 20160513
  Transmission Date: 20160815
  Serious: Yes (Hospitalization, Other)
  Sender: FDA-Public Use
  Company Number: ADR-2015-00286

PATIENT
  Age: 8 Year
  Sex: Male

DRUGS (2)
  1. LIORESAL [Suspect]
     Active Substance: BACLOFEN
     Route: 037
  2. BACLOFEN. [Suspect]
     Active Substance: BACLOFEN
     Route: 048

REACTIONS (4)
  - Implant site extravasation [Recovered/Resolved]
  - Implant site infection [Recovered/Resolved]
  - Wound dehiscence [Recovered/Resolved]
  - Medical device site discharge [Recovered/Resolved]

NARRATIVE: CASE EVENT DATE: 20150106
